FAERS Safety Report 21357761 (Version 1)
Quarter: 2022Q3

REPORT INFORMATION
  Report Type: Spontaneous
  Country: FR (occurrence: FR)
  Receive Date: 20220921
  Receipt Date: 20220921
  Transmission Date: 20221027
  Serious: Yes (Hospitalization)
  Sender: FDA-Public Use
  Company Number: None

PATIENT
  Age: 42 Year
  Sex: Female
  Weight: 48 kg

DRUGS (6)
  1. CIMETIDINE [Suspect]
     Active Substance: CIMETIDINE
     Indication: Product used for unknown indication
     Dosage: UNIT DOSE: 200 MG, FREQUENCY TIME : 1 WEEK
     Route: 065
  2. PACLITAXEL [Suspect]
     Active Substance: PACLITAXEL
     Indication: Breast cancer
     Dosage: UNIT DOSE : 120 MG, FREQUENCY TIME : 1 WEEK, DURATION : 77 DAYS
     Route: 065
     Dates: start: 20200811, end: 20201027
  3. EMEND [Suspect]
     Active Substance: APREPITANT
     Indication: Product used for unknown indication
     Dosage: EMEND 125 MG, CAPSULE, UNIT DOSE: 1 DF, FREQUENCY TIME : 1 WEEK
  4. POLARAMINE [Suspect]
     Active Substance: DEXCHLORPHENIRAMINE MALEATE
     Indication: Product used for unknown indication
     Dosage: POLARAMINE 5 MG/1 ML, SOLUTION INJECTABLE, FREQUENCY TIME : 1 WEEK, UNIT DOSE: 1 DF
  5. PRIMPERAN [Suspect]
     Active Substance: METOCLOPRAMIDE HYDROCHLORIDE
     Indication: Product used for unknown indication
     Dosage: PRIMPERAN 10 MG/2 ML, SOLUTION FOR INJECTION IN AMPOULE, FREQUENCY TIME : 1 WEEK, UNIT DOSE: 1 DF
  6. DEXAMETHASONE [Concomitant]
     Active Substance: DEXAMETHASONE
     Indication: Product used for unknown indication
     Dosage: UNIT DOSE : 20 MG, FREQUENCY TIME : 1 WEEK

REACTIONS (1)
  - Peripheral sensory neuropathy [Not Recovered/Not Resolved]

NARRATIVE: CASE EVENT DATE: 20200801
